FAERS Safety Report 12744720 (Version 3)
Quarter: 2017Q4

REPORT INFORMATION
  Report Type: Report from Study
  Country: CN (occurrence: CN)
  Receive Date: 20160915
  Receipt Date: 20171124
  Transmission Date: 20180320
  Serious: Yes (Death)
  Sender: FDA-Public Use
  Company Number: CN-ROCHE-1829925

PATIENT
  Age: 63 Year
  Sex: Male
  Weight: 68 kg

DRUGS (10)
  1. FENTANYL TRANSDERMAL SYSTEM [Concomitant]
     Active Substance: FENTANYL
     Indication: BONE PAIN
     Dosage: PATCHES
     Route: 065
     Dates: start: 20160809
  2. DICLOFENAC SODIUM. [Concomitant]
     Active Substance: DICLOFENAC SODIUM
     Indication: BONE PAIN
     Route: 065
     Dates: start: 20160810
  3. ZOLEDRONIC ACID [Concomitant]
     Active Substance: ZOLEDRONIC ACID
     Indication: BONE PAIN
     Route: 065
     Dates: start: 20160809, end: 20160809
  4. TIOTROPIUM BROMIDE [Concomitant]
     Active Substance: TIOTROPIUM BROMIDE
     Route: 065
     Dates: start: 20160809
  5. ACETAMINOPHEN/OXYCODONE [Concomitant]
     Active Substance: ACETAMINOPHEN\OXYCODONE HYDROCHLORIDE
     Indication: BONE PAIN
     Route: 065
     Dates: start: 20160809
  6. LANSOPRAZOLE. [Concomitant]
     Active Substance: LANSOPRAZOLE
     Route: 065
     Dates: start: 20160809, end: 20160809
  7. ATEZOLIZUMAB. [Suspect]
     Active Substance: ATEZOLIZUMAB
     Indication: NON-SMALL CELL LUNG CANCER
     Dosage: THIS WAS THE MOST RECENT DOSE OF ATEZOLIZUMAB PRIOR TO EVENT ONSET.
     Route: 042
     Dates: start: 20160825
  8. CLOSTRIDIUM BUTYRICUM [Concomitant]
     Active Substance: CLOSTRIDIUM BUTYRICUM SPORES STRAIN M-55
     Route: 065
     Dates: start: 20160810
  9. INDOMETACIN [Concomitant]
     Active Substance: INDOMETHACIN
     Indication: BONE PAIN
     Dosage: SUPPOSITORIES
     Route: 065
     Dates: start: 20160809
  10. THYMALFASIN [Concomitant]
     Active Substance: THYMALFASIN
     Route: 065
     Dates: start: 20160809, end: 20160810

REACTIONS (1)
  - Dyspnoea [Fatal]

NARRATIVE: CASE EVENT DATE: 20160827
